FAERS Safety Report 10471538 (Version 2)
Quarter: 2014Q4

REPORT INFORMATION
  Report Type: Report from Study
  Country: US (occurrence: US)
  Receive Date: 20140923
  Receipt Date: 20141010
  Transmission Date: 20150528
  Serious: No
  Sender: FDA-Public Use
  Company Number: US-009507513-1409USA007433

PATIENT
  Age: 53 Year
  Sex: Female

DRUGS (4)
  1. KEPPRA [Concomitant]
     Active Substance: LEVETIRACETAM
     Dosage: 2000 MG DAILY, BID
     Route: 048
     Dates: start: 20131107
  2. MEMANTINE [Concomitant]
     Active Substance: MEMANTINE
     Dosage: 28 MG DAILY, QD, EXTENDED RELEASE
     Route: 048
     Dates: start: 20140722
  3. ALPRAZOLAM. [Concomitant]
     Active Substance: ALPRAZOLAM
     Dosage: TID, PRN
     Route: 048
     Dates: start: 20130301
  4. PEMBROLIZUMAB. [Suspect]
     Active Substance: PEMBROLIZUMAB
     Indication: METASTATIC MALIGNANT MELANOMA
     Dosage: 2 MG/KG, Q3W
     Route: 042
     Dates: start: 20140822

REACTIONS (2)
  - Colitis [Recovered/Resolved]
  - Hypophysitis [Unknown]

NARRATIVE: CASE EVENT DATE: 20140911
